FAERS Safety Report 5086241-1 (Version None)
Quarter: 2006Q3

REPORT INFORMATION
  Report Type: 
  Country: None (occurrence: None)
  Receive Date: 20060703
  Receipt Date: 20060220
  Transmission Date: 20061208
  Serious: No
  Sender: FDA-Public Use
  Company Number: 2006S1001627

PATIENT
  Age: 39 Year
  Sex: Female

DRUGS (7)
  1. CLOZAPINE [Suspect]
     Dosage: 100 MG; TID; ORAL
     Route: 048
  2. NAPROXEN [Concomitant]
  3. DONEPEZIL HYDROCHLORIDE [Concomitant]
  4. DICYCLOVERINE [Concomitant]
  5. HYDROCHLORIDE [Concomitant]
  6. LITHIUM CARBONATE [Concomitant]
  7. SETRALINE HCL [Concomitant]

REACTIONS (1)
  - LEUKOPENIA [None]
